FAERS Safety Report 5893514-9 (Version None)
Quarter: 2008Q3

REPORT INFORMATION
  Report Type: 
  Country: None (occurrence: None)
  Receive Date: 20080919
  Receipt Date: 20080908
  Transmission Date: 20090109
  Serious: Yes (Hospitalization)
  Sender: FDA-Public Use
  Company Number: CAR-2008-025

PATIENT
  Age: 44 Year
  Sex: Female

DRUGS (5)
  1. SUCRALFATE [Suspect]
     Indication: DUODENAL ULCER
     Dosage: 10 MG TID
     Dates: start: 20070723, end: 20070730
  2. RABEPRAZOLE SODIUM [Suspect]
     Dates: start: 20070723, end: 20070810
  3. SODIUM ALGINATE CALCIUM GLUCONATE INJ [Suspect]
     Dates: start: 20070723, end: 20070810
  4. GLORAMIN (LEVOFLUTAMIDE, AZULENE SODIUM SULFONATE) [Suspect]
     Dates: start: 20070723, end: 20070810
  5. THIATON (TIQUIZIUM BROMIDE) [Suspect]
     Dates: start: 20070723, end: 20070810

REACTIONS (6)
  - ALANINE AMINOTRANSFERASE INCREASED [None]
  - ASPARTATE AMINOTRANSFERASE INCREASED [None]
  - BLOOD ALKALINE PHOSPHATASE INCREASED [None]
  - GAMMA-GLUTAMYLTRANSFERASE INCREASED [None]
  - HEPATITIS ACUTE [None]
  - LIVER DISORDER [None]
